FAERS Safety Report 23226179 (Version 2)
Quarter: 2023Q4

REPORT INFORMATION
  Report Type: Spontaneous
  Country: US (occurrence: None)
  Receive Date: 20231124
  Receipt Date: 20231215
  Transmission Date: 20240109
  Serious: Yes (Other)
  Sender: FDA-Public Use
  Company Number: US-FARMAPROD-202310-2963

PATIENT
  Age: 70 Year
  Sex: Female
  Weight: 74.002 kg

DRUGS (31)
  1. OXERVATE [Suspect]
     Active Substance: CENEGERMIN-BKBJ
     Indication: Neurotrophic keratopathy
     Route: 047
     Dates: start: 20230915, end: 20231115
  2. FLAREX [Concomitant]
     Active Substance: FLUOROMETHOLONE ACETATE
  3. RESTASIS [Concomitant]
     Active Substance: CYCLOSPORINE
  4. VITAMIN D3 [Concomitant]
     Active Substance: CHOLECALCIFEROL
  5. LEVOTHYROXINE SODIUM [Concomitant]
     Active Substance: LEVOTHYROXINE SODIUM
     Route: 048
  6. LEVOTHYROXINE SODIUM [Concomitant]
     Active Substance: LEVOTHYROXINE SODIUM
     Route: 048
  7. CLONIDINE HYDROCHLORIDE [Concomitant]
     Active Substance: CLONIDINE HYDROCHLORIDE
  8. HYDRALAZINE HCL [Concomitant]
     Active Substance: HYDRALAZINE HYDROCHLORIDE
     Route: 048
  9. CARVEDILOL [Concomitant]
     Active Substance: CARVEDILOL
  10. METFORMIN HYDROCHLORIDE [Concomitant]
     Active Substance: METFORMIN HYDROCHLORIDE
     Route: 048
  11. MELOXICAM [Concomitant]
     Active Substance: MELOXICAM
  12. WELCHOL [Concomitant]
     Active Substance: COLESEVELAM HYDROCHLORIDE
  13. NEXIUM [Concomitant]
     Active Substance: ESOMEPRAZOLE MAGNESIUM
  14. REPATHA [Concomitant]
     Active Substance: EVOLOCUMAB
     Dosage: PEN INJECOTE
  15. NITROGLYCERIN [Concomitant]
     Active Substance: NITROGLYCERIN
  16. VASCEPA [Concomitant]
     Active Substance: ICOSAPENT ETHYL
  17. FAMOTIDINE [Concomitant]
     Active Substance: FAMOTIDINE
  18. RANOLAZINE [Concomitant]
     Active Substance: RANOLAZINE
     Dosage: 12 HOURS
  19. COENZYME Q10 [Concomitant]
     Active Substance: DIETARY SUPPLEMENT\UBIDECARENONE
  20. GABAPENTIN [Concomitant]
     Active Substance: GABAPENTIN
  21. BUMETANIDE [Concomitant]
     Active Substance: BUMETANIDE
     Route: 048
  22. PREGABALIN [Concomitant]
     Active Substance: PREGABALIN
     Route: 048
  23. TYLENOL [Concomitant]
     Active Substance: ACETAMINOPHEN
     Route: 048
  24. IRBESARTAN [Concomitant]
     Active Substance: IRBESARTAN
     Route: 048
  25. TRAMADOL [Concomitant]
     Active Substance: TRAMADOL\TRAMADOL HYDROCHLORIDE
     Route: 048
  26. PRALIDOXIME/ATROPINE [Concomitant]
  27. METFORMIN [Concomitant]
     Active Substance: METFORMIN HYDROCHLORIDE
     Route: 048
  28. VASCEPA [Concomitant]
     Active Substance: ICOSAPENT ETHYL
     Route: 048
  29. GLIPIZIDE [Concomitant]
     Active Substance: GLIPIZIDE
     Route: 048
  30. BYSTOLIC [Concomitant]
     Active Substance: NEBIVOLOL HYDROCHLORIDE
     Route: 048
  31. RESTASIS [Concomitant]
     Active Substance: CYCLOSPORINE

REACTIONS (4)
  - Fall [Recovering/Resolving]
  - Thoracic vertebral fracture [Recovering/Resolving]
  - Eye irritation [Recovered/Resolved]
  - Eye pain [Recovered/Resolved]

NARRATIVE: CASE EVENT DATE: 20230101
